FAERS Safety Report 14085091 (Version 3)
Quarter: 2018Q3

REPORT INFORMATION
  Report Type: Report from Study
  Country: US (occurrence: US)
  Receive Date: 20171013
  Receipt Date: 20180807
  Transmission Date: 20181010
  Serious: Yes (Hospitalization, Other)
  Sender: FDA-Public Use
  Company Number: US-ROCHE-2002673

PATIENT

DRUGS (3)
  1. COBIMETINIB. [Suspect]
     Active Substance: COBIMETINIB
     Indication: PLASMA CELL MYELOMA
     Dosage: DATE OF MOST RECENT DOSE: 11/SEP/2017
     Route: 048
     Dates: start: 20170901
  2. VEMURAFENIB. [Suspect]
     Active Substance: VEMURAFENIB
     Indication: PLASMA CELL MYELOMA
     Dosage: DATE OF MOST RECENT DOSE: 18/SEP/2017
     Route: 048
     Dates: start: 20170901
  3. ATENOLOL. [Concomitant]
     Active Substance: ATENOLOL

REACTIONS (8)
  - Dehydration [Unknown]
  - Second primary malignancy [Recovered/Resolved]
  - Nausea [Unknown]
  - Bradycardia [Unknown]
  - Diarrhoea [Unknown]
  - Dizziness [Unknown]
  - Syncope [Recovering/Resolving]
  - Fatigue [Recovered/Resolved with Sequelae]

NARRATIVE: CASE EVENT DATE: 20170912
